FAERS Safety Report 5791977-0 (Version None)
Quarter: 2008Q2

REPORT INFORMATION
  Report Type: 
  Country: None (occurrence: None)
  Receive Date: 20080625
  Receipt Date: 20080429
  Transmission Date: 20081010
  Serious: No
  Sender: FDA-Public Use
  Company Number: US-WYE-H03891408

PATIENT
  Age: 74 Year
  Sex: Male
  Weight: 69.01 kg

DRUGS (6)
  1. TORISEL [Suspect]
     Indication: RENAL CELL CARCINOMA
     Dosage: 25 MG 1X PER 1 WK, INTRAVENOUS
     Route: 042
     Dates: start: 20070721
  2. K-PHOS NEUTRAL (POTASSIUM PHOSPHATE MONOBASIC/SODIUM PHOSPHATE DIBASIC [Concomitant]
  3. AMCINONIDE (AMCINONIDE) [Concomitant]
  4. ATARAX [Concomitant]
  5. METOPROLOL TARTRATE [Concomitant]
  6. RESTORIL [Concomitant]

REACTIONS (1)
  - RASH [None]
